FAERS Safety Report 9520206 (Version 1)
Quarter: 2013Q3

REPORT INFORMATION
  Report Type: Spontaneous
  Country: US (occurrence: US)
  Receive Date: 20130912
  Receipt Date: 20130912
  Transmission Date: 20140515
  Serious: No
  Sender: FDA-Public Use
  Company Number: US-MUTUAL PHARMACEUTICAL COMPANY, INC.-SFTM20120019

PATIENT
  Age: 78 Year
  Sex: 0
  Weight: 77 kg

DRUGS (3)
  1. SULFAMETHOXAZOLE AND TRIMETHOPRIM [Suspect]
     Indication: PRODUCT USED FOR UNKNOWN INDICATION
     Route: 048
     Dates: start: 20120715
  2. GELNIQUE 3% (WATSON LABORATORIES) [Suspect]
     Indication: POLLAKIURIA
     Route: 061
     Dates: start: 201207
  3. GELNIQUE 10% [Suspect]
     Indication: POLLAKIURIA
     Route: 061
     Dates: start: 20120620, end: 20120720

REACTIONS (2)
  - Drug interaction [None]
  - Diarrhoea [Recovered/Resolved]
